FAERS Safety Report 6006711-9 (Version None)
Quarter: 2008Q4

REPORT INFORMATION
  Report Type: 
  Country: None (occurrence: None)
  Receive Date: 20081217
  Receipt Date: 20080522
  Transmission Date: 20090506
  Serious: Yes (Other)
  Sender: FDA-Public Use
  Company Number: US-BAXTER-2008BH010323

PATIENT

DRUGS (10)
  1. GAMMAGARD LIQUID [Suspect]
     Indication: SYSTEMIC LUPUS ERYTHEMATOSUS
     Route: 042
  2. GAMMAGARD LIQUID [Suspect]
     Indication: MIXED CONNECTIVE TISSUE DISEASE
     Route: 042
  3. GAMMAGARD LIQUID [Suspect]
     Indication: VASCULITIS
     Route: 042
  4. GAMMAGARD LIQUID [Suspect]
     Indication: POLYMYOSITIS
     Route: 042
  5. GAMMAGARD S/D [Suspect]
     Indication: SYSTEMIC LUPUS ERYTHEMATOSUS
     Route: 042
  6. GAMMAGARD S/D [Suspect]
     Indication: POLYMYOSITIS
     Route: 042
  7. GAMMAGARD S/D [Suspect]
     Indication: VASCULITIS
     Route: 042
  8. GAMMAGARD S/D [Suspect]
     Indication: MIXED CONNECTIVE TISSUE DISEASE
     Route: 042
  9. ACETAMINOPHEN [Concomitant]
     Indication: PREMEDICATION
     Route: 065
  10. DIPHENHYDRAMINE HCL [Concomitant]
     Indication: PREMEDICATION
     Route: 065

REACTIONS (2)
  - ANAPHYLACTOID REACTION [None]
  - DRUG INTOLERANCE [None]
